FAERS Safety Report 10945015 (Version 1)
Quarter: 2015Q1

REPORT INFORMATION
  Report Type: Spontaneous
  Country: US (occurrence: None)
  Receive Date: 20150319
  Receipt Date: 20150319
  Transmission Date: 20150721
  Serious: Yes (Hospitalization)
  Sender: FDA-Public Use
  Company Number: US-H14001-15-00425

PATIENT
  Age: 09 Month
  Sex: Female

DRUGS (1)
  1. AMOXICILLIN (AMOXICILLIN) (UNKNOWN) (AMOXICILLIN) [Suspect]
     Active Substance: AMOXICILLIN
     Indication: OTITIS MEDIA ACUTE

REACTIONS (1)
  - Urticaria [None]
